FAERS Safety Report 9698073 (Version 7)
Quarter: 2015Q1

REPORT INFORMATION
  Report Type: Spontaneous
  Country: US (occurrence: US)
  Receive Date: 20131120
  Receipt Date: 20150306
  Transmission Date: 20150721
  Serious: Yes (Life-Threatening, Hospitalization, Other)
  Sender: FDA-Public Use
  Company Number: US-BAYER-2013-138820

PATIENT
  Age: 25 Year
  Sex: Female
  Weight: 59 kg

DRUGS (14)
  1. FLAGYL [Concomitant]
     Active Substance: METRONIDAZOLE\METRONIDAZOLE HYDROCHLORIDE
  2. MORPHINE [Concomitant]
     Active Substance: MORPHINE
  3. MIRENA [Suspect]
     Active Substance: LEVONORGESTREL
     Dosage: 20 MCG/24HR, CONT
     Route: 015
     Dates: start: 20121005, end: 20140515
  4. ONDANSETRON [Concomitant]
     Active Substance: ONDANSETRON
  5. PERCOCET [Concomitant]
     Active Substance: ACETAMINOPHEN\OXYCODONE HYDROCHLORIDE
  6. HYDROMORPHONE [Concomitant]
     Active Substance: HYDROMORPHONE
  7. MOTRIN [Concomitant]
     Active Substance: IBUPROFEN
  8. DIFLUCAN [Concomitant]
     Active Substance: FLUCONAZOLE
  9. KETOROLAC [Concomitant]
     Active Substance: KETOROLAC\KETOROLAC TROMETHAMINE
  10. MIRENA [Suspect]
     Active Substance: LEVONORGESTREL
     Dosage: 20 MCG/24HR, CONT
     Route: 015
     Dates: start: 20070831, end: 20121005
  11. SPRINTEC [Concomitant]
     Active Substance: ETHINYL ESTRADIOL\NORGESTIMATE
  12. KETOROLAC [Concomitant]
     Active Substance: KETOROLAC\KETOROLAC TROMETHAMINE
  13. RELISTOR [Concomitant]
     Active Substance: METHYLNALTREXONE BROMIDE
  14. ZOFRAN [Concomitant]
     Active Substance: ONDANSETRON HYDROCHLORIDE

REACTIONS (15)
  - Ovarian cyst [Not Recovered/Not Resolved]
  - Pelvic inflammatory disease [None]
  - Procedural pain [None]
  - Injury [Not Recovered/Not Resolved]
  - Anhedonia [None]
  - Weight decreased [None]
  - Anxiety [None]
  - Device dislocation [None]
  - General physical health deterioration [Not Recovered/Not Resolved]
  - Dyspareunia [None]
  - Abdominal pain lower [Not Recovered/Not Resolved]
  - Pelvic pain [Not Recovered/Not Resolved]
  - Medical device discomfort [Not Recovered/Not Resolved]
  - Emotional distress [None]
  - Bacterial infection [None]

NARRATIVE: CASE EVENT DATE: 2012
